FAERS Safety Report 9146038 (Version 1)
Quarter: 2013Q1

REPORT INFORMATION
  Report Type: Spontaneous
  Country: US (occurrence: None)
  Receive Date: 20130131
  Receipt Date: 20130131
  Transmission Date: 20140127
  Serious: Yes (Death, Hospitalization)
  Sender: FDA-Public Use
  Company Number: B0863075A

PATIENT
  Age: 62 Year
  Sex: Female

DRUGS (1)
  1. EPOPROSTENOL SODIUM [Suspect]
     Indication: PULMONARY HYPERTENSION
     Dosage: UNK / UNK /  INTRAVENOUS  INFUSION?31  MONTHS
     Route: 042

REACTIONS (7)
  - Hypersplenism [None]
  - Pancytopenia [None]
  - Dyspnoea [None]
  - Ascites [None]
  - Haematemesis [None]
  - Melaena [None]
  - Portal hypertensive gastropathy [None]
